FAERS Safety Report 7034522-4 (Version None)
Quarter: 2010Q4

REPORT INFORMATION
  Report Type: 
  Country: None (occurrence: None)
  Receive Date: 20101008
  Receipt Date: 20100929
  Transmission Date: 20110411
  Serious: Yes (Death, Hospitalization)
  Sender: FDA-Public Use
  Company Number: DE-SANOFI-AVENTIS-2010SA000321

PATIENT
  Age: 76 Year
  Sex: Male
  Weight: 115 kg

DRUGS (7)
  1. DOCETAXEL [Suspect]
     Indication: PROSTATE CANCER
     Route: 041
     Dates: start: 20091012, end: 20091012
  2. DOCETAXEL [Suspect]
     Route: 041
     Dates: start: 20091221, end: 20091221
  3. KEVATRIL [Concomitant]
     Indication: PROPHYLAXIS
     Route: 042
     Dates: start: 20091012, end: 20091221
  4. DEXAMETHASONE [Concomitant]
     Indication: PROPHYLAXIS
     Route: 042
     Dates: start: 20091012, end: 20091221
  5. METOCLOPRAMIDE HYDROCHLORIDE [Concomitant]
     Indication: PROPHYLAXIS
     Route: 048
     Dates: start: 20091012, end: 20091221
  6. NOVAMIN [Concomitant]
     Indication: PROPHYLAXIS
     Route: 048
     Dates: start: 20091012, end: 20091221
  7. ANTIHISTAMINES [Concomitant]
     Indication: PROPHYLAXIS

REACTIONS (3)
  - DEATH [None]
  - DYSPNOEA [None]
  - HYPOTENSION [None]
